FAERS Safety Report 7428665 (Version 3)
Quarter: 2013Q4

REPORT INFORMATION
  Report Type: Spontaneous
  Country: US (occurrence: US)
  Receive Date: 20100623
  Receipt Date: 20131226
  Transmission Date: 20140711
  Serious: Yes (Hospitalization)
  Sender: FDA-Public Use
  Company Number: US-BAYER-201025542NA

PATIENT
  Age: 26 Year
  Sex: Female
  Weight: 88.44 kg

DRUGS (3)
  1. YAZ [Suspect]
     Indication: CONTRACEPTION
     Dosage: UNK UNK, UNK
     Route: 048
     Dates: start: 20080611, end: 2009
  2. YASMIN [Suspect]
     Indication: CONTRACEPTION
     Dosage: 1 TABLET DAILY
     Route: 048
     Dates: start: 20040622, end: 20080601
  3. ADVIL [Concomitant]

REACTIONS (9)
  - Cholelithiasis [None]
  - Cholecystitis chronic [None]
  - Post procedural complication [None]
  - Pain [None]
  - Abdominal pain upper [None]
  - Back pain [None]
  - Nausea [None]
  - Vomiting [None]
  - Pain [None]
